FAERS Safety Report 8783994 (Version 1)
Quarter: 2012Q4

REPORT INFORMATION
  Report Type: 
  Country: US (occurrence: US)
  Receive Date: 20120913
  Receipt Date: 20120913
  Transmission Date: 20130627
  Serious: No
  Sender: FDA-Public Use
  Company Number: US-ASTRAZENECA-2012SE69206

PATIENT
  Age: 67 Year
  Sex: Female
  Weight: 62.6 kg

DRUGS (6)
  1. NEXIUM [Suspect]
     Indication: GASTRIC ULCER
     Route: 048
  2. NEXIUM [Suspect]
     Indication: GASTROOESOPHAGEAL REFLUX DISEASE
     Route: 048
  3. CYMBALTA [Concomitant]
     Indication: DEPRESSION
  4. SIMVISTATIN [Concomitant]
     Indication: BLOOD CHOLESTEROL INCREASED
  5. BABY ASPIRIN [Concomitant]
     Indication: ANTICOAGULANT THERAPY
  6. VITAMIN D [Concomitant]
     Indication: MEDICAL DIET

REACTIONS (2)
  - Condition aggravated [Unknown]
  - Off label use [Unknown]
